FAERS Safety Report 9840715 (Version 2)
Quarter: 2013Q4

REPORT INFORMATION
  Report Type: Spontaneous
  Country: US (occurrence: None)
  Receive Date: 20131223
  Receipt Date: 20131223
  Transmission Date: 20140711
  Serious: Yes (Other)
  Sender: FDA-Public Use
  Company Number: 221093LEO

PATIENT
  Age: 74 Year
  Sex: Female

DRUGS (4)
  1. PICATO [Suspect]
     Indication: ACTINIC KERATOSIS
     Dosage: 1 IN 1 D TOPICAL
     Route: 061
     Dates: start: 20130322, end: 20130324
  2. MEDICATION FOR HYPERTENSION (ANTIHYPERTENSIVES) [Concomitant]
  3. WATER PILL (DIURETICS) [Concomitant]
  4. VASELINE (PARAFFIN) [Concomitant]

REACTIONS (5)
  - Application site pain [None]
  - Application site erythema [None]
  - Application site exfoliation [None]
  - Wrong technique in drug usage process [None]
  - Drug administered at inappropriate site [None]
